FAERS Safety Report 12876552 (Version 1)
Quarter: 2016Q4

REPORT INFORMATION
  Report Type: Spontaneous
  Country: US (occurrence: US)
  Receive Date: 20161021
  Receipt Date: 20161021
  Transmission Date: 20170207
  Serious: Yes (Life-Threatening)
  Sender: FDA-Public Use
  Company Number: None

PATIENT
  Age: 25 Year
  Sex: Female
  Weight: 99 kg

DRUGS (1)
  1. ZONISAMIDE. [Suspect]
     Active Substance: ZONISAMIDE
     Indication: EPILEPSY
     Dates: start: 20160825, end: 20160928

REACTIONS (6)
  - Flank pain [None]
  - White blood cell count decreased [None]
  - Haemoglobin decreased [None]
  - Splenomegaly [None]
  - Haematocrit decreased [None]
  - Red blood cell count decreased [None]

NARRATIVE: CASE EVENT DATE: 20160913
